FAERS Safety Report 4907104-5 (Version None)
Quarter: 2006Q1

REPORT INFORMATION
  Report Type: 
  Country: None (occurrence: None)
  Receive Date: 20060206
  Receipt Date: 20060125
  Transmission Date: 20060701
  Serious: Yes (Hospitalization)
  Sender: FDA-Public Use
  Company Number: 2005165533

PATIENT
  Age: 59 Year
  Sex: Female
  Weight: 87 kg

DRUGS (5)
  1. CLINDAMYCIN HCL [Suspect]
     Indication: GINGIVITIS
     Dosage: 2100 MG (300 MG,), ORAL
     Route: 048
     Dates: start: 20051102, end: 20051108
  2. ALL OTHER THERAPEUTIC PRODUCTS (ALL OTHER THERAPEUTIC PRODUCTS) [Concomitant]
  3. CIPRONEX (CIPROFLOXACIN) [Concomitant]
  4. CLONAZEPAM [Concomitant]
  5. LERIVON (MIANSERIN HYDROCHLORIDE) [Concomitant]

REACTIONS (3)
  - ORAL MUCOSA EROSION [None]
  - RASH ERYTHEMATOUS [None]
  - RASH PAPULAR [None]
